FAERS Safety Report 13863395 (Version 1)
Quarter: 2017Q3

REPORT INFORMATION
  Report Type: Spontaneous
  Country: US (occurrence: US)
  Receive Date: 20170814
  Receipt Date: 20170814
  Transmission Date: 20171127
  Serious: No
  Sender: FDA-Public Use
  Company Number: US-PFIZER INC-2017347194

PATIENT
  Sex: Female

DRUGS (1)
  1. XELJANZ XR [Suspect]
     Active Substance: TOFACITINIB CITRATE
     Dosage: 11 MG, DAILY

REACTIONS (24)
  - Dry mouth [Unknown]
  - Malaise [Unknown]
  - Arthralgia [Unknown]
  - Anxiety [Unknown]
  - Peripheral swelling [Unknown]
  - Joint range of motion decreased [Unknown]
  - Swelling [Unknown]
  - Fatigue [Unknown]
  - Dyspepsia [Unknown]
  - Synovial disorder [Unknown]
  - Pain in extremity [Unknown]
  - Spinal pain [Unknown]
  - Joint swelling [Unknown]
  - Foot deformity [Unknown]
  - Depression [Unknown]
  - Myalgia [Unknown]
  - Asthenia [Unknown]
  - Pain [Unknown]
  - Musculoskeletal pain [Unknown]
  - Arthropathy [Unknown]
  - Back pain [Unknown]
  - Oedema peripheral [Unknown]
  - Bone pain [Unknown]
  - Musculoskeletal chest pain [Unknown]
